FAERS Safety Report 4470551-2 (Version None)
Quarter: 2004Q4

REPORT INFORMATION
  Report Type: 
  Country: None (occurrence: None)
  Receive Date: 20041011
  Receipt Date: 20040929
  Transmission Date: 20050328
  Serious: Yes (Hospitalization)
  Sender: FDA-Public Use
  Company Number: FR-JNJFOC-20041000189

PATIENT
  Age: 71 Year
  Sex: Female

DRUGS (6)
  1. REMICADE [Suspect]
     Route: 042
  2. REMICADE [Suspect]
     Route: 042
  3. REMICADE [Suspect]
     Indication: RHEUMATOID ARTHRITIS
     Route: 042
  4. ARAVA [Suspect]
     Indication: RHEUMATOID ARTHRITIS
     Route: 049
  5. PREVISCAN [Concomitant]
     Route: 049
  6. TENORMIN [Concomitant]
     Route: 049

REACTIONS (10)
  - ABDOMINAL DISTENSION [None]
  - ALCOHOLISM [None]
  - CARDIAC FAILURE [None]
  - DIABETES MELLITUS [None]
  - DISEASE RECURRENCE [None]
  - HEPATIC CIRRHOSIS [None]
  - HEPATIC STEATOSIS [None]
  - LIVER DISORDER [None]
  - PLEURAL EFFUSION [None]
  - PULMONARY EMBOLISM [None]
